FAERS Safety Report 25946246 (Version 1)
Quarter: 2025Q4

REPORT INFORMATION
  Report Type: Spontaneous
  Country: US (occurrence: US)
  Receive Date: 20251022
  Receipt Date: 20251022
  Transmission Date: 20260118
  Serious: No
  Sender: ABBVIE
  Company Number: US-ABBVIE-6509302

PATIENT
  Sex: Female

DRUGS (1)
  1. VYALEV [Suspect]
     Active Substance: FOSCARBIDOPA\FOSLEVODOPA
     Indication: Product used for unknown indication
     Dosage: CONTINUOUS 24 HOUR INFUSION FREQUENCY: UNKNOWN
     Route: 058

REACTIONS (6)
  - Hypoaesthesia [Not Recovered/Not Resolved]
  - Infusion site nodule [Not Recovered/Not Resolved]
  - Infusion site infection [Not Recovered/Not Resolved]
  - Infusion site mass [Not Recovered/Not Resolved]
  - Device leakage [Not Recovered/Not Resolved]
  - Infusion site erythema [Not Recovered/Not Resolved]
